FAERS Safety Report 9747040 (Version 1)
Quarter: 2013Q4

REPORT INFORMATION
  Report Type: Spontaneous
  Country: US (occurrence: US)
  Receive Date: 20131211
  Receipt Date: 20131211
  Transmission Date: 20140711
  Serious: Yes (Other)
  Sender: FDA-Public Use
  Company Number: US-BAXTER-2013BAX048573

PATIENT
  Age: 55 Year
  Sex: Female

DRUGS (4)
  1. GAMMAGARD LIQUID [Suspect]
     Indication: ZIEVE SYNDROME
     Dosage: 1 G/KG
  2. GAMMAGARD LIQUID [Suspect]
     Indication: OFF LABEL USE
  3. PREDNISONE [Suspect]
     Indication: ZIEVE SYNDROME
  4. PREDNISONE [Suspect]
     Indication: OFF LABEL USE

REACTIONS (1)
  - No therapeutic response [Not Recovered/Not Resolved]
